FAERS Safety Report 18621708 (Version 4)
Quarter: 2021Q1

REPORT INFORMATION
  Report Type: Spontaneous
  Country: CA (occurrence: CA)
  Receive Date: 20201215
  Receipt Date: 20210305
  Transmission Date: 20210419
  Serious: Yes (Other)
  Sender: FDA-Public Use
  Company Number: CA-CELLTRION INC.-2020CA018676

PATIENT

DRUGS (10)
  1. INFLECTRA [Suspect]
     Active Substance: INFLIXIMAB-DYYB
     Dosage: 700 MG EVERY 7 WEEKS
     Route: 042
     Dates: start: 20200520
  2. INFLECTRA [Suspect]
     Active Substance: INFLIXIMAB-DYYB
     Dosage: 700 MG EVERY 7 WEEKS
     Route: 042
     Dates: start: 20200707
  3. INFLECTRA [Suspect]
     Active Substance: INFLIXIMAB-DYYB
     Dosage: 700 MG EVERY 7 WEEKS
     Route: 042
     Dates: start: 20200330
  4. INFLECTRA [Suspect]
     Active Substance: INFLIXIMAB-DYYB
     Dosage: 700 MG EVERY 7 WEEKS
     Route: 042
     Dates: start: 20200831
  5. INFLECTRA [Suspect]
     Active Substance: INFLIXIMAB-DYYB
     Indication: CROHN^S DISEASE
     Dosage: 700 MG EVERY 7 WEEKS
     Route: 042
     Dates: start: 20200212
  6. INFLECTRA [Suspect]
     Active Substance: INFLIXIMAB-DYYB
     Dosage: 700 MG EVERY 7 WEEKS
     Route: 042
     Dates: start: 20210115
  7. INFLECTRA [Suspect]
     Active Substance: INFLIXIMAB-DYYB
     Dosage: 700 MG EVERY 7 WEEKS
     Route: 042
     Dates: start: 20201024, end: 20201024
  8. INFLECTRA [Suspect]
     Active Substance: INFLIXIMAB-DYYB
     Dosage: 700 MG EVERY 7 WEEKS
     Route: 042
     Dates: start: 20201203, end: 20201203
  9. INFLECTRA [Suspect]
     Active Substance: INFLIXIMAB-DYYB
     Dosage: UNK
  10. ACETAMINOPHEN. [Concomitant]
     Active Substance: ACETAMINOPHEN
     Indication: PREMEDICATION
     Dosage: 650 MG (325? 650 MG)

REACTIONS (8)
  - Abdominal distension [Unknown]
  - Therapeutic response shortened [Unknown]
  - Off label use [Unknown]
  - Crohn^s disease [Unknown]
  - Disease recurrence [Unknown]
  - Blood pressure increased [Unknown]
  - Fatigue [Unknown]
  - Condition aggravated [Unknown]

NARRATIVE: CASE EVENT DATE: 2020
